FAERS Safety Report 4269528-1 (Version None)
Quarter: 2004Q1

REPORT INFORMATION
  Report Type: 
  Country: None (occurrence: None)
  Receive Date: 20040113
  Receipt Date: 20031109
  Transmission Date: 20041129
  Serious: Yes (Life-Threatening, Hospitalization)
  Sender: FDA-Public Use
  Company Number: PHFR2003GB04369

PATIENT
  Age: 32 Year
  Sex: Female

DRUGS (5)
  1. CLOZARIL [Suspect]
     Indication: SCHIZOPHRENIA
     Route: 048
     Dates: start: 20021116, end: 20031112
  2. CLOZARIL [Suspect]
     Dosage: 500MG/DAY
     Route: 048
     Dates: start: 20031116
  3. CLOZARIL [Suspect]
     Route: 048
     Dates: start: 20020911
  4. RISPERIDONE [Concomitant]
     Dosage: 2MG/DAY
     Route: 048
  5. FLUOXETINE                              /N/A/ [Concomitant]
     Dosage: 20MG/DAY
     Route: 048
     Dates: start: 20031021

REACTIONS (6)
  - BODY TEMPERATURE INCREASED [None]
  - BRONCHOPNEUMONIA [None]
  - NEUTROPHIL COUNT DECREASED [None]
  - PYREXIA [None]
  - RASH VESICULAR [None]
  - VARICELLA [None]
